FAERS Safety Report 25755401 (Version 1)
Quarter: 2025Q3

REPORT INFORMATION
  Report Type: Spontaneous
  Country: US (occurrence: None)
  Receive Date: 20250903
  Receipt Date: 20250903
  Transmission Date: 20251020
  Serious: No
  Sender: INCYTE
  Company Number: US-INCYTE CORPORATION-2025IN009283

PATIENT

DRUGS (1)
  1. JAKAFI [Suspect]
     Active Substance: RUXOLITINIB
     Indication: Autoimmune haemolytic anaemia
     Dosage: 5 MILLIGRAM, QD

REACTIONS (3)
  - Off label use [Unknown]
  - Chills [Unknown]
  - Pyrexia [Unknown]
